FAERS Safety Report 7930292 (Version 26)
Quarter: 2017Q2

REPORT INFORMATION
  Report Type: Report from Study
  Country: CA (occurrence: CA)
  Receive Date: 20110504
  Receipt Date: 20170628
  Transmission Date: 20170830
  Serious: Yes (Other)
  Sender: FDA-Public Use
  Company Number: PHHY2011CA25417

PATIENT
  Age: 46 Year
  Sex: Male

DRUGS (3)
  1. METFORMIN [Concomitant]
     Active Substance: METFORMIN HYDROCHLORIDE
     Indication: PRODUCT USED FOR UNKNOWN INDICATION
     Dosage: 500 MG, BID
     Dates: start: 2017
  2. SANDOSTATIN LAR DEPOT [Suspect]
     Active Substance: OCTREOTIDE ACETATE
     Indication: ACROMEGALY
     Dosage: 30 MG, QW3 ( EVERY 3 WEEKS)
     Route: 030
     Dates: start: 19980104
  3. ANDROGEL [Concomitant]
     Active Substance: TESTOSTERONE
     Indication: BLOOD TESTOSTERONE DECREASED
     Dosage: 1 DF, QD
     Route: 065
     Dates: start: 20140407

REACTIONS (27)
  - Arthralgia [Unknown]
  - Blood pressure increased [Unknown]
  - Pain [Not Recovered/Not Resolved]
  - Sleep disorder [Unknown]
  - Cluster headache [Unknown]
  - Seasonal allergy [Unknown]
  - Musculoskeletal chest pain [Not Recovered/Not Resolved]
  - Flank pain [Not Recovered/Not Resolved]
  - Blood glucose increased [Unknown]
  - Blood growth hormone increased [Unknown]
  - Inappropriate schedule of drug administration [Unknown]
  - Needle issue [Unknown]
  - Arthritis [Not Recovered/Not Resolved]
  - Back pain [Not Recovered/Not Resolved]
  - Snoring [Unknown]
  - Dizziness [Recovered/Resolved]
  - Palpitations [Unknown]
  - Weight decreased [Unknown]
  - Feeling abnormal [Unknown]
  - Heart rate decreased [Unknown]
  - Mood altered [Not Recovered/Not Resolved]
  - Soft tissue swelling [Unknown]
  - Meniscus injury [Unknown]
  - Irritability [Not Recovered/Not Resolved]
  - Anxiety [Not Recovered/Not Resolved]
  - Skin hypertrophy [Unknown]
  - Blood pressure systolic increased [Unknown]

NARRATIVE: CASE EVENT DATE: 2014
